FAERS Safety Report 12891346 (Version 1)
Quarter: 2016Q4

REPORT INFORMATION
  Report Type: Spontaneous
  Country: US (occurrence: US)
  Receive Date: 20161026
  Receipt Date: 20161026
  Transmission Date: 20170207
  Serious: No
  Sender: FDA-Public Use
  Company Number: None

PATIENT
  Age: 13 Year
  Sex: Female
  Weight: 41.4 kg

DRUGS (2)
  1. DAYTIME NIGHTTIME SINUS RELIEF MAXIMUM STRENGTH [Suspect]
     Active Substance: ACETAMINOPHEN\DEXTROMETHORPHAN HYDROBROMIDE\DOXYLAMINE SUCCINATE\GUAIFENESIN\PHENYLEPHRINE HYDROCHLORIDE
     Indication: NASOPHARYNGITIS
     Dosage: ?          QUANTITY:2 LIQUID GELS;?
     Route: 048
     Dates: start: 20161025, end: 20161025
  2. DAYTIME NIGHTTIME SINUS RELIEF MAXIMUM STRENGTH [Suspect]
     Active Substance: ACETAMINOPHEN\DEXTROMETHORPHAN HYDROBROMIDE\DOXYLAMINE SUCCINATE\GUAIFENESIN\PHENYLEPHRINE HYDROCHLORIDE
     Indication: COUGH
     Dosage: ?          QUANTITY:2 LIQUID GELS;?
     Route: 048
     Dates: start: 20161025, end: 20161025

REACTIONS (6)
  - Confusional state [None]
  - Dyspnoea [None]
  - Palpitations [None]
  - Tremor [None]
  - Sleep disorder [None]
  - Psychomotor hyperactivity [None]

NARRATIVE: CASE EVENT DATE: 20161025
